FAERS Safety Report 19030041 (Version 1)
Quarter: 2021Q1

REPORT INFORMATION
  Report Type: Spontaneous
  Country: TW (occurrence: TW)
  Receive Date: 20210319
  Receipt Date: 20210319
  Transmission Date: 20210420
  Serious: Yes (Hospitalization, Other)
  Sender: FDA-Public Use
  Company Number: TW-ACCORD-219811

PATIENT
  Age: 64 Year
  Sex: Male

DRUGS (1)
  1. CARBOPLATIN. [Suspect]
     Active Substance: CARBOPLATIN
     Indication: LEIOMYOSARCOMA

REACTIONS (4)
  - Stomatitis [Recovered/Resolved]
  - Pneumonia [Recovered/Resolved]
  - Skin reaction [Recovered/Resolved]
  - Oesophagitis [Recovered/Resolved]
